FAERS Safety Report 5226417-3 (Version None)
Quarter: 2007Q1

REPORT INFORMATION
  Report Type: 
  Country: None (occurrence: None)
  Receive Date: 20061201
  Receipt Date: 20060928
  Transmission Date: 20070707
  Serious: No
  Sender: FDA-Public Use
  Company Number: US200609007023

PATIENT
  Age: 52 Year
  Sex: Female

DRUGS (5)
  1. CYMBALTA [Suspect]
     Indication: FIBROMYALGIA
     Dosage: 30 MG
     Dates: start: 20060101
  2. THYROID TAB [Concomitant]
  3. LEVOXYL [Concomitant]
  4. CETIMIL (NEDOCROMIL SODIUM) [Concomitant]
  5. TOPROL-XL [Concomitant]

REACTIONS (3)
  - ANXIETY [None]
  - DISTURBANCE IN ATTENTION [None]
  - NERVOUSNESS [None]
